FAERS Safety Report 25771930 (Version 1)
Quarter: 2025Q3

REPORT INFORMATION
  Report Type: Spontaneous
  Country: EU (occurrence: EU)
  Receive Date: 20250908
  Receipt Date: 20250908
  Transmission Date: 20251021
  Serious: Yes (Other)
  Sender: TEVA
  Company Number: None

PATIENT
  Age: 78 Year
  Sex: Female
  Weight: 48 kg

DRUGS (2)
  1. METOPROLOL [Suspect]
     Active Substance: METOPROLOL
     Indication: Hypertension
     Route: 048
     Dates: start: 20250720, end: 20250722
  2. PERINDOPRIL [Suspect]
     Active Substance: PERINDOPRIL
     Indication: Hypertension
     Route: 048
     Dates: start: 20250720, end: 20250722

REACTIONS (9)
  - Arrhythmia [Recovering/Resolving]
  - Depression [Recovering/Resolving]
  - Muscular weakness [Recovering/Resolving]
  - Taste disorder [Recovering/Resolving]
  - Chest pain [Recovering/Resolving]
  - Sleep disorder [Recovering/Resolving]
  - Speech disorder [Recovering/Resolving]
  - Dizziness [Recovering/Resolving]
  - Cerebrovascular accident [Recovering/Resolving]

NARRATIVE: CASE EVENT DATE: 20250723
